FAERS Safety Report 18426430 (Version 1)
Quarter: 2020Q4

REPORT INFORMATION
  Report Type: Spontaneous
  Country: US (occurrence: US)
  Receive Date: 20201026
  Receipt Date: 20201026
  Transmission Date: 20210114
  Serious: Yes (Other)
  Sender: FDA-Public Use
  Company Number: None

PATIENT
  Age: 77 Year
  Sex: Female
  Weight: 113.4 kg

DRUGS (1)
  1. AMOX-CLAV 500/125 [Suspect]
     Active Substance: AMOXICILLIN\CLAVULANATE POTASSIUM
     Indication: ABSCESS ORAL
     Route: 048
     Dates: start: 20201023, end: 20201024

REACTIONS (7)
  - Condition aggravated [None]
  - Nausea [None]
  - Dizziness [None]
  - Balance disorder [None]
  - Influenza like illness [None]
  - Headache [None]
  - Myalgia [None]

NARRATIVE: CASE EVENT DATE: 20201024
